FAERS Safety Report 7043970-8 (Version None)
Quarter: 2010Q4

REPORT INFORMATION
  Report Type: 
  Country: None (occurrence: None)
  Receive Date: 20101012
  Receipt Date: 20101012
  Transmission Date: 20110411
  Serious: Yes (Other)
  Sender: FDA-Public Use
  Company Number: None

PATIENT
  Age: 83 Year
  Sex: Female
  Weight: 54.8852 kg

DRUGS (1)
  1. TARCEVA [Suspect]

REACTIONS (2)
  - CONJUNCTIVITIS [None]
  - MADAROSIS [None]
